FAERS Safety Report 23144809 (Version 1)
Quarter: 2023Q4

REPORT INFORMATION
  Report Type: Spontaneous
  Country: FR (occurrence: FR)
  Receive Date: 20231103
  Receipt Date: 20231103
  Transmission Date: 20240110
  Serious: Yes (Other)
  Sender: FDA-Public Use
  Company Number: FR-002147023-NVSC2022FR298832

PATIENT

DRUGS (1)
  1. LUTETIUM OXODOTREOTIDE LU-177 [Suspect]
     Active Substance: LUTETIUM OXODOTREOTIDE LU-177
     Indication: Product used for unknown indication
     Dosage: UNK UNK, ONCE/SINGLE (370 MBQ/ML, ONCE) (RECEIVED 3 DOSES)
     Route: 065

REACTIONS (2)
  - Disease progression [Unknown]
  - Ill-defined disorder [Unknown]
